FAERS Safety Report 8295756-4 (Version None)
Quarter: 2012Q2

REPORT INFORMATION
  Report Type: 
  Country: None (occurrence: None)
  Receive Date: 20120416
  Receipt Date: 20120403
  Transmission Date: 20120825
  Serious: Yes (Hospitalization)
  Sender: FDA-Public Use
  Company Number: JP-2012-13862

PATIENT
  Age: 90 Year
  Sex: Male
  Weight: 54 kg

DRUGS (10)
  1. LASIX [Concomitant]
  2. SAMSCA [Suspect]
     Indication: FLUID RETENTION
     Dosage: 7.5 MG MILLIGRAM(S), QAM, ORAL
     Route: 048
     Dates: start: 20120214, end: 20120222
  3. PENTAZOCINE LACTATE [Concomitant]
  4. TSURUDOPAMI (DOPAMINE HYDROCHLORIDE) [Concomitant]
  5. SUBPACK-B (ARTIFICIAL DIALYSATE) [Concomitant]
  6. HEPARIN AND PREPARATIONS (HEPARIN AND PREPARATIONS) [Concomitant]
  7. HANP (CARPERITIDE) [Concomitant]
  8. ATARAX [Concomitant]
  9. ALBUMINAR (ALBUMIN) [Concomitant]
  10. DOBUPUM (DOBUTAMINE HYDROCHLORIDE) [Concomitant]

REACTIONS (5)
  - OLIGURIA [None]
  - ANAEMIA [None]
  - BLOOD PRESSURE DECREASED [None]
  - RESTLESSNESS [None]
  - DIALYSIS [None]
